FAERS Safety Report 6666266-2 (Version None)
Quarter: 2010Q2

REPORT INFORMATION
  Report Type: 
  Country: None (occurrence: None)
  Receive Date: 20100402
  Receipt Date: 20100318
  Transmission Date: 20101027
  Serious: Yes (Other)
  Sender: FDA-Public Use
  Company Number: CA-GENENTECH-296222

PATIENT
  Sex: Male
  Weight: 88.9 kg

DRUGS (4)
  1. XOLAIR [Suspect]
     Indication: ASTHMA
     Dosage: 375 MG, Q2W
     Route: 058
     Dates: start: 20090903
  2. XOLAIR [Suspect]
     Dosage: 375 MG, Q2W
     Route: 058
     Dates: start: 20091130
  3. XOLAIR [Suspect]
     Dosage: 375 MG, Q2W
     Route: 058
     Dates: start: 20100304
  4. XOLAIR [Suspect]
     Dosage: 375 MG, Q2W
     Dates: start: 20100318

REACTIONS (7)
  - COUGH [None]
  - EAR CONGESTION [None]
  - NASAL CONGESTION [None]
  - NASAL OPERATION [None]
  - NASAL POLYPECTOMY [None]
  - NASOPHARYNGITIS [None]
  - RALES [None]
